FAERS Safety Report 14997220 (Version 1)
Quarter: 2018Q2

REPORT INFORMATION
  Report Type: Report from Study
  Country: FR (occurrence: FR)
  Receive Date: 20180611
  Receipt Date: 20180611
  Transmission Date: 20180711
  Serious: Yes (Hospitalization)
  Sender: FDA-Public Use
  Company Number: FR-ASTRAZENECA-2018SE75165

PATIENT
  Age: 22320 Day
  Sex: Female
  Weight: 69 kg

DRUGS (1)
  1. MEDI4736 [Suspect]
     Active Substance: DURVALUMAB
     Indication: BREAST CANCER METASTATIC
     Dosage: 700 MG
     Route: 042
     Dates: start: 20180315

REACTIONS (1)
  - Retroperitoneal oedema [Not Recovered/Not Resolved]

NARRATIVE: CASE EVENT DATE: 20180529
